FAERS Safety Report 7251205-6 (Version None)
Quarter: 2011Q1

REPORT INFORMATION
  Report Type: 
  Country: None (occurrence: None)
  Receive Date: 20110128
  Receipt Date: 20110120
  Transmission Date: 20110831
  Serious: Yes (Hospitalization, Other)
  Sender: FDA-Public Use
  Company Number: JP-AMGEN-KDC428928

PATIENT
  Age: 45 Year
  Sex: Male
  Weight: 96 kg

DRUGS (20)
  1. CALCIUM LEVOFOLINATE [Suspect]
     Indication: COLORECTAL CANCER
     Dosage: 375 MG, Q2WK
     Route: 041
     Dates: start: 20100720
  2. ALLEGRA [Concomitant]
     Route: 048
  3. ROHYPNOL [Concomitant]
     Route: 048
  4. PANITUMUMAB [Suspect]
     Indication: PROPHYLAXIS
     Dosage: 6 MG/KG, Q2WK
     Route: 041
     Dates: start: 20100720, end: 20100720
  5. IRINOTECAN HYDROCHLORIDE [Suspect]
     Indication: COLORECTAL CANCER
     Dosage: 120 MG, Q2WK
     Route: 041
     Dates: start: 20100720
  6. FLUOROURACIL [Suspect]
     Indication: COLORECTAL CANCER
     Dosage: 750 MG, Q2WK
     Route: 040
     Dates: start: 20100720
  7. MINOMYCIN [Concomitant]
     Dosage: UNK UNK, UNK
     Route: 048
  8. OXINORM [Concomitant]
     Route: 048
  9. OXYCONTIN [Concomitant]
     Route: 048
  10. FLUOROURACIL [Suspect]
     Dosage: 4500 MG, Q2WK
     Route: 041
     Dates: start: 20100720
  11. TALION [Concomitant]
     Route: 048
  12. PANITUMUMAB [Suspect]
     Dosage: 4.8 MG/KG, Q2WK
     Route: 041
     Dates: start: 20100824, end: 20101130
  13. DECADRON [Concomitant]
     Dosage: UNK UNK, UNK
     Route: 048
  14. MINOMYCIN [Concomitant]
     Route: 048
  15. PROTECADIN [Concomitant]
     Route: 048
  16. PYDOXAL [Concomitant]
     Dosage: UNK UNK, UNK
     Route: 048
  17. EMEND [Concomitant]
     Route: 048
  18. URSO 250 [Concomitant]
     Route: 048
  19. CORTICOSTEROID NOS [Concomitant]
     Indication: PROPHYLAXIS
     Dosage: UNK UNK, UNK
     Route: 065
  20. LOPEMIN [Concomitant]
     Route: 048

REACTIONS (2)
  - DERMATITIS ACNEIFORM [None]
  - HEPATIC FUNCTION ABNORMAL [None]
